FAERS Safety Report 22151795 (Version 1)
Quarter: 2023Q1

REPORT INFORMATION
  Report Type: Spontaneous
  Country: ES (occurrence: ES)
  Receive Date: 20230329
  Receipt Date: 20230329
  Transmission Date: 20230418
  Serious: Yes (Hospitalization)
  Sender: FDA-Public Use
  Company Number: None

PATIENT
  Age: 82 Year
  Sex: Male

DRUGS (11)
  1. TRAMADOL [Suspect]
     Active Substance: TRAMADOL
     Indication: Spinal stenosis
     Dosage: 50 MILLIGRAM, C/12 H
     Route: 048
     Dates: start: 20210212, end: 20221018
  2. PARACETAMOL KERN PHARMA [Concomitant]
     Indication: Pain in extremity
     Dosage: 1 GRAM, 40 TABLETS , BREAKFAST, LUNCH, DINNER
     Route: 048
     Dates: start: 20220419
  3. FUROSEMIDE [Concomitant]
     Active Substance: FUROSEMIDE
     Indication: Atrial fibrillation
     Dosage: 40 MILLIGRAM A-BREAKFAST
     Route: 048
     Dates: start: 20220917
  4. ALLOPURINOL [Concomitant]
     Active Substance: ALLOPURINOL
     Indication: Gout
     Dosage: 100 MILLIGRAM, DINNER
     Route: 048
     Dates: start: 20220916
  5. NITROGLYCERIN [Concomitant]
     Active Substance: NITROGLYCERIN
     Indication: Myocardial ischaemia
     Dosage: 5 MILLIGRAM, C/24 H
     Route: 065
     Dates: start: 20220818
  6. PREGABALINA NORMON [Concomitant]
     Indication: Musculoskeletal chest pain
     Dosage: 25 MG, BREAKFAST, DINNER, 56 CAPSULE
     Route: 048
     Dates: start: 20200810
  7. TRAZODONE HYDROCHLORIDE [Concomitant]
     Active Substance: TRAZODONE HYDROCHLORIDE
     Indication: Insomnia
     Dosage: 100 MILLIGRAM, C/24 H NOC
     Route: 048
     Dates: start: 20200831
  8. PANTOPRAZOL NORMON [Concomitant]
     Indication: Dyspepsia
     Dosage: 20 MILLIGRAM, BREAKFAST
     Route: 048
     Dates: start: 20141118
  9. XARELTO [Concomitant]
     Active Substance: RIVAROXABAN
     Indication: Atrial fibrillation
     Dosage: 20 MILLIGRAM, BREAKFAST
     Route: 048
     Dates: start: 20220820
  10. VALDOXAN [Concomitant]
     Active Substance: AGOMELATINE
     Indication: Adjustment disorder with depressed mood
     Dosage: 25 MILLIGRAM, C/24 H  NOC, 28 TABLETS
     Route: 048
     Dates: start: 20180918
  11. DUTASTERIDE\TAMSULOSIN HYDROCHLORIDE [Concomitant]
     Active Substance: DUTASTERIDE\TAMSULOSIN HYDROCHLORIDE
     Indication: Benign prostatic hyperplasia
     Dosage: 1.0 CAPS, BREAKFAST, 30 CAPSULE
     Route: 048
     Dates: start: 20160809

REACTIONS (1)
  - Disorientation [Recovered/Resolved]

NARRATIVE: CASE EVENT DATE: 20221018
